FAERS Safety Report 24966974 (Version 1)
Quarter: 2025Q1

REPORT INFORMATION
  Report Type: Spontaneous
  Country: NO (occurrence: NO)
  Receive Date: 20250213
  Receipt Date: 20250213
  Transmission Date: 20250408
  Serious: Yes (Other)
  Sender: RIGEL PHARMACEUTICALS
  Company Number: NO-RIGEL Pharmaceuticals INC-20250200085

PATIENT
  Age: 54 Year
  Sex: Female

DRUGS (14)
  1. FOSTAMATINIB DISODIUM [Suspect]
     Active Substance: FOSTAMATINIB DISODIUM
     Indication: Immune thrombocytopenia
     Dosage: 100 MILLIGRAM, BID
     Route: 048
     Dates: start: 202009, end: 202010
  2. FOSTAMATINIB DISODIUM [Suspect]
     Active Substance: FOSTAMATINIB DISODIUM
     Dosage: 150 MILLIGRAM, BID
     Route: 048
     Dates: start: 202010
  3. FOSTAMATINIB DISODIUM [Suspect]
     Active Substance: FOSTAMATINIB DISODIUM
     Dosage: 150 MILLIGRAM, QD
     Route: 048
     Dates: start: 2021
  4. FOSTAMATINIB DISODIUM [Suspect]
     Active Substance: FOSTAMATINIB DISODIUM
     Route: 048
     Dates: start: 202104, end: 202106
  5. FOSTAMATINIB DISODIUM [Suspect]
     Active Substance: FOSTAMATINIB DISODIUM
     Dosage: 100 MILLIGRAM, BID
     Route: 048
     Dates: start: 202110
  6. FOSTAMATINIB DISODIUM [Suspect]
     Active Substance: FOSTAMATINIB DISODIUM
     Dosage: 150 MILLIGRAM, BID
     Route: 048
     Dates: start: 202111, end: 202203
  7. CALCIFEDIOL [Concomitant]
     Active Substance: CALCIFEDIOL
     Indication: Product used for unknown indication
     Route: 065
  8. FOLIC ACID PLUS VITAMIN B12 [Concomitant]
     Indication: Product used for unknown indication
     Dosage: UNK, QD
     Route: 065
  9. DEXAMETHASONE [Concomitant]
     Active Substance: DEXAMETHASONE
     Indication: Product used for unknown indication
     Dosage: 20 MILLIGRAM, QD
     Route: 065
     Dates: start: 202110
  10. ROMIPLOSTIM [Concomitant]
     Active Substance: ROMIPLOSTIM
     Indication: Product used for unknown indication
     Route: 065
     Dates: start: 202009
  11. ROMIPLOSTIM [Concomitant]
     Active Substance: ROMIPLOSTIM
     Dosage: 500 MICROGRAM, QW
     Route: 065
     Dates: start: 202110
  12. ROMIPLOSTIM [Concomitant]
     Active Substance: ROMIPLOSTIM
     Dosage: 250 MICROGRAM, Q.WK.
     Route: 065
     Dates: start: 2021, end: 202203
  13. ROMIPLOSTIM [Concomitant]
     Active Substance: ROMIPLOSTIM
     Dosage: 50 MICROGRAM, Q.WK.
     Route: 065
     Dates: start: 202112, end: 202203
  14. CYCLOSPORINE [Concomitant]
     Active Substance: CYCLOSPORINE
     Indication: Product used for unknown indication
     Route: 065
     Dates: start: 202009

REACTIONS (1)
  - Platelet count increased [Recovering/Resolving]

NARRATIVE: CASE EVENT DATE: 20210101
